FAERS Safety Report 4866679-5 (Version None)
Quarter: 2005Q4

REPORT INFORMATION
  Report Type: 
  Country: None (occurrence: None)
  Receive Date: 20051221
  Receipt Date: 20051212
  Transmission Date: 20060501
  Serious: Yes (Hospitalization)
  Sender: FDA-Public Use
  Company Number: 2005168266

PATIENT
  Age: 66 Year
  Sex: Male

DRUGS (17)
  1. PREDNISOLONE [Suspect]
     Indication: POLYMYOSITIS
     Dosage: (1 IN 1 D), ORAL
     Route: 048
     Dates: start: 20040218
  2. ARAVA [Suspect]
     Indication: POLYMYOSITIS
     Dosage: 10 MG (10 MG, 1 IN 1 D), ORAL
     Route: 048
     Dates: start: 20050401, end: 20051125
  3. ADCAL (CARBAZOCHROME) [Concomitant]
  4. TEMAZEPAM [Concomitant]
  5. ORAMORPH SR [Concomitant]
  6. AMITRIPTYLINE (AMITRIPTYLINE) [Concomitant]
  7. MORPHINE [Concomitant]
  8. MOVICOL (MACROGOL, POTASSIUM CHLORIDE, SODIUM BICARBONATE, SODIUM CHLO [Concomitant]
  9. SALMETEROL (SALMETEROL) [Concomitant]
  10. SALBUTAMOL (SALBUTAMOL) [Concomitant]
  11. PARACETAMOL (PARACETAMOL) [Concomitant]
  12. SIMVASTATIN [Concomitant]
  13. GLIPIZIDE [Concomitant]
  14. COMBIVENT [Concomitant]
  15. OMEPRAZOLE [Concomitant]
  16. CALCITRIOL [Concomitant]
  17. HYOSCINE HBR HYT [Concomitant]

REACTIONS (3)
  - ABDOMINAL PAIN [None]
  - GASTROINTESTINAL HAEMORRHAGE [None]
  - VOMITING [None]
